FAERS Safety Report 6642655-7 (Version None)
Quarter: 2010Q1

REPORT INFORMATION
  Report Type: 
  Country: None (occurrence: None)
  Receive Date: 20100319
  Receipt Date: 20100315
  Transmission Date: 20100710
  Serious: Yes (Death)
  Sender: FDA-Public Use
  Company Number: SA-ASTRAZENECA-2010SE11383

PATIENT
  Age: 38 Year
  Sex: Male
  Weight: 100 kg

DRUGS (3)
  1. SEROQUEL [Suspect]
     Indication: DRUG DEPENDENCE
     Dosage: 3 TIMES
     Route: 048
     Dates: start: 20100311
  2. ZYPREXA [Concomitant]
  3. VALIUM [Concomitant]

REACTIONS (1)
  - DEATH [None]
